FAERS Safety Report 13636019 (Version 1)
Quarter: 2017Q2

REPORT INFORMATION
  Report Type: Spontaneous
  Country: US (occurrence: US)
  Receive Date: 20170531
  Receipt Date: 20170531
  Transmission Date: 20170830
  Serious: No
  Sender: FDA-Public Use
  Company Number: US-ASTELLAS-1770645

PATIENT
  Sex: Female

DRUGS (6)
  1. BACTRIM [Concomitant]
     Active Substance: SULFAMETHOXAZOLE\TRIMETHOPRIM
     Route: 065
  2. INFED [Concomitant]
     Active Substance: IRON DEXTRAN
  3. LEVOFLOXACIN. [Concomitant]
     Active Substance: LEVOFLOXACIN
  4. TARCEVA [Suspect]
     Active Substance: ERLOTINIB HYDROCHLORIDE
     Indication: PANCREATIC CARCINOMA
     Route: 048
     Dates: start: 20160512
  5. METRONIDAZOLE. [Concomitant]
     Active Substance: METRONIDAZOLE
  6. TARCEVA [Suspect]
     Active Substance: ERLOTINIB HYDROCHLORIDE
     Route: 048
     Dates: start: 20170316

REACTIONS (4)
  - Skin exfoliation [Recovered/Resolved]
  - Memory impairment [Unknown]
  - Nausea [Unknown]
  - Haemorrhagic diathesis [Unknown]
